FAERS Safety Report 8232359-1 (Version None)
Quarter: 2012Q1

REPORT INFORMATION
  Report Type: 
  Country: None (occurrence: None)
  Receive Date: 20120323
  Receipt Date: 20120319
  Transmission Date: 20120608
  Serious: Yes (Death)
  Sender: FDA-Public Use
  Company Number: US-GLAXOSMITHKLINE-A0970352A

PATIENT
  Age: 67 Year
  Sex: Male

DRUGS (11)
  1. NEURONTIN [Concomitant]
  2. GLYBURIDE [Concomitant]
  3. METFORMIN HCL [Concomitant]
  4. FENTANYL-100 [Concomitant]
  5. ZILACTIN [Concomitant]
  6. ADVAIR DISKUS 100/50 [Suspect]
     Indication: CHRONIC OBSTRUCTIVE PULMONARY DISEASE
     Dosage: 2PUFF THREE TIMES PER DAY
     Route: 055
  7. RESTORIL [Concomitant]
  8. THEOPHYLLINE [Concomitant]
  9. VERAPAMIL [Concomitant]
  10. SPIRIVA [Concomitant]
  11. OXYCODONE HCL [Concomitant]

REACTIONS (1)
  - DEATH [None]
